FAERS Safety Report 8426414-0 (Version None)
Quarter: 2012Q2

REPORT INFORMATION
  Report Type: 
  Country: None (occurrence: None)
  Receive Date: 20120523
  Receipt Date: 20120511
  Transmission Date: 20120825
  Serious: Yes (Hospitalization)
  Sender: FDA-Public Use
  Company Number: 2012032293

PATIENT
  Age: 59 Year
  Sex: Female

DRUGS (9)
  1. BRICANYL [Concomitant]
  2. BERINERT [Suspect]
     Indication: STENT PLACEMENT
     Dosage: 1000 IU, 1000 IU SINGLE DOSE; 2 VIALS OF 500 IU, NI
     Route: 042
     Dates: start: 20110315
  3. BERINERT [Suspect]
     Indication: STENT PLACEMENT
     Dosage: 1000 IU, 1000 IU SINGLE DOSE; 2 VIALS OF 500 IU, NI
     Route: 042
     Dates: start: 20120123, end: 20120123
  4. VALPROIC ACID [Concomitant]
  5. LEVOTHYROXINE SODIUM [Concomitant]
  6. PRAZEPAM [Concomitant]
  7. ATACAND [Concomitant]
  8. ATROVENT [Concomitant]
  9. ZARONTIN [Concomitant]

REACTIONS (4)
  - VENOUS THROMBOSIS [None]
  - OFF LABEL USE [None]
  - PHLEBITIS [None]
  - OEDEMA PERIPHERAL [None]
